FAERS Safety Report 23357358 (Version 2)
Quarter: 2024Q1

REPORT INFORMATION
  Report Type: Spontaneous
  Country: JP (occurrence: JP)
  Receive Date: 20240102
  Receipt Date: 20240118
  Transmission Date: 20240409
  Serious: Yes (Hospitalization, Other)
  Sender: FDA-Public Use
  Company Number: JP-BAYER-2023A184492

PATIENT
  Age: 9 Decade
  Sex: Female

DRUGS (1)
  1. STIVARGA [Suspect]
     Active Substance: REGORAFENIB
     Dosage: 80MG
     Route: 048
     Dates: end: 20231225

REACTIONS (2)
  - Pneumothorax [Recovered/Resolved]
  - Oxygen saturation decreased [None]
